FAERS Safety Report 5995485-3 (Version None)
Quarter: 2008Q4

REPORT INFORMATION
  Report Type: 
  Country: None (occurrence: None)
  Receive Date: 20081212
  Receipt Date: 20081204
  Transmission Date: 20090506
  Serious: Yes (Hospitalization, Other)
  Sender: FDA-Public Use
  Company Number: DE-WYE-G02629808

PATIENT
  Sex: Female

DRUGS (8)
  1. VENLAFAXINE HCL [Suspect]
     Indication: DEPRESSION
     Route: 048
     Dates: start: 20060101, end: 20080101
  2. VENLAFAXINE HCL [Suspect]
     Dosage: TAPERING
     Route: 048
     Dates: start: 20080101, end: 20080101
  3. RAMIPRIL [Concomitant]
     Dosage: UNKNOWN
     Route: 048
  4. LEVOTHYROXINE SODIUM [Concomitant]
     Route: 048
  5. SIMVASTATIN [Concomitant]
     Route: 048
  6. METOPROLOL [Concomitant]
     Route: 048
  7. PANTOPRAZOLE SODIUM [Concomitant]
     Route: 048
  8. HYDROCHLOROTHIAZIDE [Concomitant]
     Dosage: UNKNOWN
     Route: 048

REACTIONS (8)
  - ABDOMINAL PAIN [None]
  - COAGULATION TIME PROLONGED [None]
  - COLITIS ISCHAEMIC [None]
  - DRUG WITHDRAWAL SYNDROME [None]
  - RED BLOOD CELL SEDIMENTATION RATE INCREASED [None]
  - RESTLESS LEGS SYNDROME [None]
  - VIRAL INFECTION [None]
  - WEIGHT DECREASED [None]
